FAERS Safety Report 17866239 (Version 3)
Quarter: 2022Q2

REPORT INFORMATION
  Report Type: Spontaneous
  Country: US (occurrence: US)
  Receive Date: 20200605
  Receipt Date: 20220601
  Transmission Date: 20220721
  Serious: Yes (Death, Other)
  Sender: FDA-Public Use
  Company Number: US-SAARTEMIS-SAC202006040095

PATIENT
  Age: 64 Year

DRUGS (1)
  1. ZANTAC [Suspect]
     Active Substance: RANITIDINE HYDROCHLORIDE
     Indication: Dyspepsia
     Dosage: 150 MG, QD
     Route: 065
     Dates: start: 200701, end: 201901

REACTIONS (2)
  - Bladder cancer stage III [Fatal]
  - Prostate cancer [Fatal]

NARRATIVE: CASE EVENT DATE: 20181010
